FAERS Safety Report 8952890 (Version 1)
Quarter: 2012Q4

REPORT INFORMATION
  Report Type: 
  Country: JP (occurrence: JP)
  Receive Date: 20121203
  Receipt Date: 20121203
  Transmission Date: 20130627
  Serious: Yes (Hospitalization)
  Sender: FDA-Public Use
  Company Number: JP-009507513-2012SP017374

PATIENT
  Age: 69 Year
  Sex: Female
  Weight: 47 kg

DRUGS (10)
  1. PEGINTERFERON ALFA-2B [Suspect]
     Indication: CHRONIC HEPATITIS C
     Dosage: 80 ?g, QW
     Route: 058
     Dates: start: 20120117, end: 20120201
  2. PEGINTERFERON ALFA-2B [Suspect]
     Dosage: 1.8 Microgram per kilogram, UNK
     Route: 058
     Dates: start: 20120508, end: 20120620
  3. PEGINTERFERON ALFA-2B [Suspect]
     Dosage: 0.9 Microgram per kilogram, UNK
     Route: 058
     Dates: start: 20120621, end: 20120621
  4. REBETOL [Suspect]
     Indication: CHRONIC HEPATITIS C
     Dosage: 600 mg, QD
     Route: 048
     Dates: start: 20120117, end: 20120126
  5. REBETOL [Suspect]
     Dosage: 200 mg, QD
     Route: 048
     Dates: start: 20120127, end: 20120205
  6. REBETOL [Suspect]
     Dosage: 200 mg, qd
     Route: 048
     Dates: start: 20120508, end: 20120612
  7. REBETOL [Suspect]
     Dosage: 200 mg/2 day
     Route: 048
     Dates: start: 20120613, end: 20120621
  8. TELAVIC [Suspect]
     Indication: CHRONIC HEPATITIS C
     Dosage: 1500 mg, QD
     Route: 048
     Dates: start: 20120117, end: 20120205
  9. TELAVIC [Suspect]
     Dosage: 750 mg, qd
     Route: 048
     Dates: start: 20120508, end: 20120621
  10. URSO [Concomitant]
     Indication: CHRONIC HEPATITIS C
     Dosage: UPDATE (10MAY2012): FORMULATION: POR
     Route: 048
     Dates: start: 20120223

REACTIONS (3)
  - Renal tubular necrosis [Recovered/Resolved]
  - Anaemia [Recovered/Resolved]
  - Haemoglobin decreased [Recovering/Resolving]
